FAERS Safety Report 5106800-7 (Version None)
Quarter: 2006Q3

REPORT INFORMATION
  Report Type: 
  Country: None (occurrence: None)
  Receive Date: 20060731
  Receipt Date: 20051003
  Transmission Date: 20061208
  Serious: Yes (Hospitalization, Other)
  Sender: FDA-Public Use
  Company Number: US-JNJFOC-20050903039

PATIENT
  Age: 73 Year
  Sex: Male
  Weight: 65.318 kg

DRUGS (6)
  1. RISPERDAL [Suspect]
     Indication: BIPOLAR DISORDER
     Dosage: 0.5 MG, 3 IN 1 DAY,ORAL
     Route: 048
     Dates: start: 20050606, end: 20050901
  2. RISPERDAL [Suspect]
     Indication: DEMENTIA
     Dosage: 0.5 MG, 3 IN 1 DAY,ORAL
     Route: 048
     Dates: start: 20050606, end: 20050901
  3. ARICEPT [Concomitant]
  4. DEPAKOTE [Concomitant]
  5. LEXAPRO (SSRI) [Concomitant]
  6. LORAZEPAM [Concomitant]

REACTIONS (2)
  - DYSURIA [None]
  - PRIAPISM [None]
